FAERS Safety Report 16460299 (Version 1)
Quarter: 2019Q2

REPORT INFORMATION
  Report Type: Report from Study
  Country: US (occurrence: US)
  Receive Date: 20190620
  Receipt Date: 20190620
  Transmission Date: 20190711
  Serious: Yes (Other)
  Sender: FDA-Public Use
  Company Number: US-GILEAD-2019-0410689

PATIENT
  Age: 18 Year
  Sex: Male

DRUGS (2)
  1. AZTREONAM LYSINE [Suspect]
     Active Substance: AZTREONAM LYSINE
     Indication: CYSTIC FIBROSIS
  2. AZTREONAM LYSINE [Suspect]
     Active Substance: AZTREONAM LYSINE
     Indication: INVESTIGATION ABNORMAL
     Dosage: 75 MG

REACTIONS (4)
  - Chronic respiratory disease [Unknown]
  - Bacterial infection [Unknown]
  - Tracheostomy [Not Recovered/Not Resolved]
  - Off label use [Not Recovered/Not Resolved]
